FAERS Safety Report 10057330 (Version 2)
Quarter: 2014Q2

REPORT INFORMATION
  Report Type: Report from Study
  Country: CA (occurrence: CA)
  Receive Date: 20140403
  Receipt Date: 20140516
  Transmission Date: 20141212
  Serious: Yes (Other)
  Sender: FDA-Public Use
  Company Number: CA-ABBVIE-14P-028-1216907-00

PATIENT
  Sex: Male

DRUGS (1)
  1. HUMIRA [Suspect]
     Indication: CROHN^S DISEASE
     Route: 058
     Dates: start: 20131025, end: 20140228

REACTIONS (5)
  - Ileostomy [Unknown]
  - Vital functions abnormal [Unknown]
  - Laboratory test abnormal [Unknown]
  - Dehydration [Unknown]
  - Drug ineffective [Unknown]
